FAERS Safety Report 17465935 (Version 2)
Quarter: 2020Q1

REPORT INFORMATION
  Report Type: Spontaneous
  Country: US (occurrence: US)
  Receive Date: 20200227
  Receipt Date: 20200304
  Transmission Date: 20200409
  Serious: No
  Sender: FDA-Public Use
  Company Number: US-AMGEN INC.-USASP2020031299

PATIENT
  Age: 61 Year
  Sex: Female

DRUGS (2)
  1. AIMOVIG [Suspect]
     Active Substance: ERENUMAB-AOOE
     Dosage: 70 MILLIGRAM, QMO
     Route: 065
     Dates: start: 20200218
  2. AIMOVIG [Suspect]
     Active Substance: ERENUMAB-AOOE
     Indication: MIGRAINE
     Dosage: 140 MILLIGRAM (INTRODUCTORY DOSE)
     Route: 065
     Dates: start: 202001, end: 202001

REACTIONS (6)
  - Dyspnoea [Recovering/Resolving]
  - Migraine [Recovering/Resolving]
  - Chest discomfort [Recovering/Resolving]
  - Diarrhoea [Unknown]
  - Muscle spasms [Recovering/Resolving]
  - Product colour issue [Unknown]

NARRATIVE: CASE EVENT DATE: 202001
